FAERS Safety Report 6752509-3 (Version None)
Quarter: 2010Q2

REPORT INFORMATION
  Report Type: 
  Country: None (occurrence: None)
  Receive Date: 20100601
  Receipt Date: 20100601
  Transmission Date: 20101027
  Serious: No
  Sender: FDA-Public Use
  Company Number: None

PATIENT
  Age: 23 Year
  Sex: Male
  Weight: 90.7194 kg

DRUGS (1)
  1. CIPROFLOXACIN [Suspect]
     Indication: PROSTATITIS
     Dates: start: 20090701, end: 20090706

REACTIONS (6)
  - ARTHRITIS [None]
  - EMOTIONAL DISORDER [None]
  - EYE DISORDER [None]
  - HALLUCINATION [None]
  - NERVOUS SYSTEM DISORDER [None]
  - TENDONITIS [None]
